FAERS Safety Report 7935348 (Version 6)
Quarter: 2013Q3

REPORT INFORMATION
  Report Type: Spontaneous
  Country: US (occurrence: US)
  Receive Date: 20110509
  Receipt Date: 20130809
  Transmission Date: 20140515
  Serious: Yes (Hospitalization, Other)
  Sender: FDA-Public Use
  Company Number: US-ROCHE-747563

PATIENT
  Age: 18 Year
  Sex: Male
  Weight: 59 kg

DRUGS (2)
  1. ACCUTANE [Suspect]
     Indication: ACNE
     Route: 065
     Dates: start: 19950101, end: 19950601
  2. ACCUTANE [Suspect]
     Route: 065
     Dates: start: 1996, end: 1997

REACTIONS (8)
  - Crohn^s disease [Unknown]
  - Gastrointestinal injury [Unknown]
  - Intestinal obstruction [Unknown]
  - Anal fistula [Unknown]
  - Anal abscess [Unknown]
  - Large intestine polyp [Unknown]
  - Depression [Unknown]
  - Iron deficiency anaemia [Unknown]
